FAERS Safety Report 21381008 (Version 1)
Quarter: 2022Q3

REPORT INFORMATION
  Report Type: Spontaneous
  Country: CN (occurrence: CN)
  Receive Date: 20220927
  Receipt Date: 20220927
  Transmission Date: 20221027
  Serious: Yes (Hospitalization)
  Sender: FDA-Public Use
  Company Number: CN-PFIZER INC-PV202200070234

PATIENT
  Age: 38 Year
  Sex: Female
  Weight: 66.5 kg

DRUGS (1)
  1. EPIRUBICIN [Suspect]
     Active Substance: EPIRUBICIN
     Indication: Breast cancer
     Dosage: 160 MG, 1X/14 DAYS
     Route: 041
     Dates: start: 20220721, end: 20220721

REACTIONS (4)
  - Myelosuppression [Recovering/Resolving]
  - Pyrexia [Recovering/Resolving]
  - Oropharyngeal pain [Recovering/Resolving]
  - Noninfective gingivitis [Recovering/Resolving]

NARRATIVE: CASE EVENT DATE: 20220802
